FAERS Safety Report 13649837 (Version 5)
Quarter: 2017Q3

REPORT INFORMATION
  Report Type: Spontaneous
  Country: GB (occurrence: GB)
  Receive Date: 20170614
  Receipt Date: 20170915
  Transmission Date: 20171127
  Serious: Yes (Other)
  Sender: FDA-Public Use
  Company Number: GB-AMGEN-IRLSP2017089259

PATIENT
  Age: 68 Year
  Sex: Male
  Weight: 63.4 kg

DRUGS (2)
  1. ARANESP [Suspect]
     Active Substance: DARBEPOETIN ALFA
     Indication: NEPHROGENIC ANAEMIA
     Dosage: 100 MUG, Q3WK
     Route: 058
  2. ARANESP [Suspect]
     Active Substance: DARBEPOETIN ALFA
     Dosage: 100 MUG, QMO
     Route: 058
     Dates: start: 201508

REACTIONS (1)
  - Aplasia pure red cell [Unknown]

NARRATIVE: CASE EVENT DATE: 2015
